FAERS Safety Report 9366003 (Version 1)
Quarter: 2013Q2

REPORT INFORMATION
  Report Type: Spontaneous
  Country: None (occurrence: FR)
  Receive Date: 20130625
  Receipt Date: 20130625
  Transmission Date: 20140414
  Serious: Yes (Hospitalization)
  Sender: FDA-Public Use
  Company Number: FR-TEVA-414534ISR

PATIENT
  Age: 87 Year
  Sex: Male

DRUGS (11)
  1. FUROSEMIDE TEVA [Suspect]
     Dosage: 40 MILLIGRAM DAILY;
     Route: 048
  2. ZOLPIDEM [Suspect]
     Dosage: 1 DOSAGE FORMS DAILY;
     Route: 048
  3. THERALENE [Suspect]
     Dosage: 10  DAILY;
     Route: 048
  4. COLCHICINE [Concomitant]
  5. LANSOPRAZOLE [Concomitant]
  6. VERAPAMIL [Concomitant]
  7. ATORVASTATIN [Concomitant]
  8. KARDEGIC [Concomitant]
  9. IRBESARTAN [Concomitant]
  10. FORADIL [Concomitant]
  11. OXEOL [Concomitant]

REACTIONS (2)
  - Balance disorder [Recovered/Resolved]
  - Oedema peripheral [Unknown]
